APPROVED DRUG PRODUCT: METRO I.V.
Active Ingredient: METRONIDAZOLE
Strength: 500MG/100ML
Dosage Form/Route: INJECTABLE;INJECTION
Application: N018674 | Product #001
Applicant: B BRAUN MEDICAL INC
Approved: Aug 31, 1982 | RLD: No | RS: No | Type: DISCN